FAERS Safety Report 23682077 (Version 1)
Quarter: 2024Q1

REPORT INFORMATION
  Report Type: Spontaneous
  Country: US (occurrence: US)
  Receive Date: 20240328
  Receipt Date: 20240328
  Transmission Date: 20240409
  Serious: Yes (Hospitalization)
  Sender: FDA-Public Use
  Company Number: US-CADILA HEALTHCARE LIMITED-US-ZYDUS-104695

PATIENT

DRUGS (2)
  1. DOXYCYCLINE [Suspect]
     Active Substance: DOXYCYCLINE
     Indication: Pneumothorax
     Dosage: 500 MILLIGRAM
     Route: 065
  2. BUPIVACAINE [Concomitant]
     Active Substance: BUPIVACAINE
     Indication: Pneumothorax
     Dosage: 0.75 PERCENT, 20ML
     Route: 065

REACTIONS (1)
  - Traumatic lung injury [Recovering/Resolving]
